FAERS Safety Report 9171376 (Version 1)
Quarter: 2013Q1

REPORT INFORMATION
  Report Type: Spontaneous
  Country: FR (occurrence: FR)
  Receive Date: 20130319
  Receipt Date: 20130319
  Transmission Date: 20140127
  Serious: Yes (Hospitalization)
  Sender: FDA-Public Use
  Company Number: FR-PFIZER INC-2013087664

PATIENT
  Age: 59 Year
  Sex: Female

DRUGS (14)
  1. ARGANOVA [Suspect]
     Indication: HEPARIN-INDUCED THROMBOCYTOPENIA
     Dosage: 1 DF, 1X/DAY
     Route: 041
     Dates: start: 20121101, end: 20121115
  2. ALDACTAZINE [Concomitant]
     Dosage: UNK
  3. NEBIVOLOL HYDROCHLORIDE [Concomitant]
     Dosage: UNK
  4. VELMETIA [Concomitant]
     Dosage: UNK
  5. FERROUS SULFATE [Concomitant]
     Dosage: UNK
  6. FOLIC ACID [Concomitant]
     Dosage: UNK
  7. FEBUXOSTAT [Concomitant]
     Dosage: UNK
  8. SALBUTAMOL [Concomitant]
     Dosage: UNK
  9. CYANOCOBALAMIN [Concomitant]
     Dosage: UNK
  10. FENOFIBRATE [Concomitant]
     Dosage: UNK
  11. RUPATADINE FUMARATE [Concomitant]
     Dosage: UNK
  12. FLUTICASONE PROPIONATE [Concomitant]
     Dosage: UNK
  13. METEOSPASMYL [Concomitant]
     Dosage: UNK
  14. METOPIMAZINE [Concomitant]
     Dosage: UNK

REACTIONS (2)
  - Renal haematoma [Recovered/Resolved]
  - Anaemia [Recovered/Resolved]
